FAERS Safety Report 5759004-9 (Version None)
Quarter: 2008Q2

REPORT INFORMATION
  Report Type: 
  Country: None (occurrence: None)
  Receive Date: 20080530
  Receipt Date: 20080515
  Transmission Date: 20081010
  Serious: Yes (Hospitalization)
  Sender: FDA-Public Use
  Company Number: 028185

PATIENT
  Age: 3 Year
  Sex: Male

DRUGS (1)
  1. CLARAVIS [Suspect]
     Indication: NEUROBLASTOMA
     Dosage: 130 MG/M2, QD,

REACTIONS (4)
  - BLOOD PARATHYROID HORMONE DECREASED [None]
  - HYPERCALCAEMIA [None]
  - PNEUMONIA FUNGAL [None]
  - RENAL FAILURE [None]
